FAERS Safety Report 13281963 (Version 1)
Quarter: 2017Q1

REPORT INFORMATION
  Report Type: Spontaneous
  Country: US (occurrence: US)
  Receive Date: 20170301
  Receipt Date: 20170301
  Transmission Date: 20170428
  Serious: Yes (Hospitalization)
  Sender: FDA-Public Use
  Company Number: None

PATIENT
  Age: 84 Year
  Sex: Female

DRUGS (3)
  1. METRONIDAZOLE. [Suspect]
     Active Substance: METRONIDAZOLE
  2. CEFEPIME [Suspect]
     Active Substance: CEFEPIME HYDROCHLORIDE
  3. ZOSYN [Suspect]
     Active Substance: PIPERACILLIN SODIUM\TAZOBACTAM SODIUM

REACTIONS (8)
  - Body temperature abnormal [None]
  - Blood albumin abnormal [None]
  - Blood iron decreased [None]
  - Diarrhoea [None]
  - Blood electrolytes abnormal [None]
  - White blood cell disorder [None]
  - Neutrophil count abnormal [None]
  - Blood calcium decreased [None]

NARRATIVE: CASE EVENT DATE: 20150723
